FAERS Safety Report 8897226 (Version 1)
Quarter: 2012Q4

REPORT INFORMATION
  Report Type: 
  Country: US (occurrence: US)
  Receive Date: 20121108
  Receipt Date: 20121108
  Transmission Date: 20130627
  Serious: No
  Sender: FDA-Public Use
  Company Number: US-AMGEN-USASP2012012099

PATIENT
  Age: 89 Year
  Sex: Female

DRUGS (8)
  1. ENBREL [Suspect]
     Indication: PRODUCT USED FOR UNKNOWN INDICATION
     Dosage: 50 mg, qwk
     Route: 058
  2. PAXIL [Concomitant]
     Dosage: 20 mg, UNK
  3. TYLENOL WITH CODEIN #4 [Concomitant]
  4. OMEPRAZOLE [Concomitant]
     Dosage: 10 mg, UNK
  5. VITAMIN D /00107901/ [Concomitant]
     Dosage: 1000 IU, UNK
  6. VITAMIN C                          /00008001/ [Concomitant]
     Dosage: 500 mg, UNK
  7. MULTIVITAMIN                       /00097801/ [Concomitant]
  8. CRANBERRY                          /01512301/ [Concomitant]
     Dosage: 450 mg, UNK

REACTIONS (1)
  - Influenza [Recovered/Resolved]
